FAERS Safety Report 8383104 (Version 4)
Quarter: 2013Q4

REPORT INFORMATION
  Report Type: Spontaneous
  Country: US (occurrence: US)
  Receive Date: 20120130
  Receipt Date: 20131106
  Transmission Date: 20140711
  Serious: Yes (Hospitalization, Other)
  Sender: FDA-Public Use
  Company Number: US-MERCK-1201USA02868

PATIENT
  Age: 53 Year
  Sex: Male

DRUGS (5)
  1. JANUVIA [Suspect]
     Dosage: 100 MG, QD
     Route: 048
  2. MK-9378 [Suspect]
     Dosage: UNK UNK, BID
  3. AMARYL [Suspect]
     Indication: TYPE 2 DIABETES MELLITUS
     Route: 048
     Dates: start: 201108
  4. AMARYL [Suspect]
     Dosage: 4 MG, BID
     Route: 048
  5. JANUVIA [Suspect]
     Indication: TYPE 2 DIABETES MELLITUS
     Dosage: 50 MG, QD
     Route: 048
     Dates: start: 201107

REACTIONS (5)
  - Staphylococcal infection [Unknown]
  - Myocardial infarction [Unknown]
  - Kidney infection [Unknown]
  - Blood creatinine increased [Unknown]
  - Diabetes mellitus inadequate control [Unknown]
